FAERS Safety Report 12132500 (Version 1)
Quarter: 2016Q1

REPORT INFORMATION
  Report Type: Spontaneous
  Country: US (occurrence: US)
  Receive Date: 20160301
  Receipt Date: 20160301
  Transmission Date: 20160526
  Serious: No
  Sender: FDA-Public Use
  Company Number: US-JNJFOC-20160107568

PATIENT
  Age: 77 Year
  Sex: Male

DRUGS (12)
  1. ASCORBIC ACID. [Concomitant]
     Active Substance: ASCORBIC ACID
     Route: 065
  2. VITAMIN D [Concomitant]
     Active Substance: CHOLECALCIFEROL
     Route: 065
  3. XARELTO [Suspect]
     Active Substance: RIVAROXABAN
     Indication: CEREBROVASCULAR ACCIDENT PROPHYLAXIS
     Route: 048
     Dates: start: 2015
  4. XARELTO [Suspect]
     Active Substance: RIVAROXABAN
     Indication: ATRIAL FIBRILLATION
     Route: 048
     Dates: start: 2015
  5. AMLODIPINE [Concomitant]
     Active Substance: AMLODIPINE BESYLATE
     Route: 065
  6. QUINAPRIL [Concomitant]
     Active Substance: QUINAPRIL\QUINAPRIL HYDROCHLORIDE
     Route: 065
  7. ATENOLOL. [Concomitant]
     Active Substance: ATENOLOL
     Route: 065
  8. TOCOPHEROL [Concomitant]
     Active Substance: TOCOPHEROL
     Route: 065
  9. MEGARED OMEGA 3 KRILL OIL [Concomitant]
     Route: 065
  10. PRAVASTATIN [Concomitant]
     Active Substance: PRAVASTATIN\PRAVASTATIN SODIUM
     Route: 065
  11. VITAMIN B12 [Concomitant]
     Active Substance: CYANOCOBALAMIN
     Route: 065
  12. ASPIRIN. [Concomitant]
     Active Substance: ASPIRIN
     Route: 065

REACTIONS (1)
  - Tooth disorder [Not Recovered/Not Resolved]

NARRATIVE: CASE EVENT DATE: 201512
